FAERS Safety Report 18355551 (Version 1)
Quarter: 2020Q4

REPORT INFORMATION
  Report Type: Spontaneous
  Country: US (occurrence: US)
  Receive Date: 20201006
  Receipt Date: 20201006
  Transmission Date: 20210114
  Serious: Yes (Hospitalization)
  Sender: FDA-Public Use
  Company Number: None

PATIENT
  Age: 64 Year
  Sex: Female

DRUGS (19)
  1. DICLOFENAC GEL [Concomitant]
     Active Substance: DICLOFENAC
  2. METHYPRED [Concomitant]
  3. UREA INTN CRE [Concomitant]
  4. ESCITALOPRAM [Concomitant]
     Active Substance: ESCITALOPRAM OXALATE
  5. ESTRADIOL. [Concomitant]
     Active Substance: ESTRADIOL
  6. ALENDRONATE [Concomitant]
     Active Substance: ALENDRONATE SODIUM
  7. AMOX/K CLAV [Concomitant]
     Active Substance: AMOXICILLIN\CLAVULANATE POTASSIUM
  8. FLUTICASONE. [Concomitant]
     Active Substance: FLUTICASONE
  9. ROSUVASTATIN. [Concomitant]
     Active Substance: ROSUVASTATIN
  10. ORENCIA [Suspect]
     Active Substance: ABATACEPT
     Indication: RHEUMATOID ARTHRITIS
     Route: 058
     Dates: start: 20200409
  11. FEXOFENADINE [Concomitant]
     Active Substance: FEXOFENADINE HYDROCHLORIDE
  12. MIRTAZAPINE. [Concomitant]
     Active Substance: MIRTAZAPINE
  13. OXYCODONE AND ACETAMINOPHEN [Concomitant]
     Active Substance: ACETAMINOPHEN\OXYCODONE HYDROCHLORIDE
  14. DEXILANT [Concomitant]
     Active Substance: DEXLANSOPRAZOLE
  15. FLUOCINONIDE. [Concomitant]
     Active Substance: FLUOCINONIDE
  16. KETOCONAZOLE. [Concomitant]
     Active Substance: KETOCONAZOLE
  17. ALBUTEROL AER [Concomitant]
     Active Substance: ALBUTEROL
  18. METHOCARBAM [Concomitant]
     Active Substance: METHOCARBAMOL
  19. PREDNISONE. [Concomitant]
     Active Substance: PREDNISONE

REACTIONS (3)
  - Therapy interrupted [None]
  - Procedural complication [None]
  - Myalgia [None]

NARRATIVE: CASE EVENT DATE: 20200505
